FAERS Safety Report 21361853 (Version 2)
Quarter: 2022Q4

REPORT INFORMATION
  Report Type: Report from Study
  Country: US (occurrence: US)
  Receive Date: 20220922
  Receipt Date: 20221014
  Transmission Date: 20230112
  Serious: Yes (Death, Hospitalization, Other)
  Sender: FDA-Public Use
  Company Number: US-ACADIA PHARMACEUTICALS INC.-ACA-2022-PIM-003098

PATIENT
  Age: 75 Year
  Sex: Male

DRUGS (12)
  1. NUPLAZID [Suspect]
     Active Substance: PIMAVANSERIN TARTRATE
     Indication: Parkinson^s disease psychosis
     Dosage: 34 MILLIGRAM, QD
     Route: 048
     Dates: start: 20210729
  2. SERTRALINE [Concomitant]
     Active Substance: SERTRALINE HYDROCHLORIDE
  3. GABAPENTIN [Concomitant]
     Active Substance: GABAPENTIN
  4. TRAMADOL [Concomitant]
     Active Substance: TRAMADOL
  5. DOCUSATE [Concomitant]
     Active Substance: DOCUSATE
  6. ROPINIROLE [Concomitant]
     Active Substance: ROPINIROLE
  7. CARBIDOPA\LEVODOPA [Concomitant]
     Active Substance: CARBIDOPA\LEVODOPA
  8. PRAVASTATIN [Concomitant]
     Active Substance: PRAVASTATIN
  9. ENTACAPONE [Concomitant]
     Active Substance: ENTACAPONE
  10. FINASTERIDE [Concomitant]
     Active Substance: FINASTERIDE
  11. CLONIDINE [Concomitant]
     Active Substance: CLONIDINE
  12. DORZOLAMIDE\TIMOLOL [Concomitant]
     Active Substance: DORZOLAMIDE\TIMOLOL

REACTIONS (2)
  - Sepsis [Recovered/Resolved]
  - Renal failure [Recovered/Resolved]

NARRATIVE: CASE EVENT DATE: 20220812
